FAERS Safety Report 25395674 (Version 1)
Quarter: 2025Q2

REPORT INFORMATION
  Report Type: Spontaneous
  Country: US (occurrence: None)
  Receive Date: 20250603
  Receipt Date: 20250603
  Transmission Date: 20250716
  Serious: Yes (Hospitalization, Disabling)
  Sender: FDA-CTU
  Company Number: None

PATIENT
  Age: 33 Year
  Sex: Female
  Weight: 144 kg

DRUGS (1)
  1. ADALIMUMAB [Suspect]
     Active Substance: ADALIMUMAB
     Indication: Crohn^s disease
     Dosage: OTHER FREQUENCY : EVERY OTHER WEEK;?
     Route: 058
     Dates: start: 20230710, end: 20250516

REACTIONS (6)
  - Weight increased [None]
  - Hepatomegaly [None]
  - Small intestinal obstruction [None]
  - Gastrooesophageal reflux disease [None]
  - Blood pressure increased [None]
  - Human papilloma virus test positive [None]

NARRATIVE: CASE EVENT DATE: 20250517
